FAERS Safety Report 9696709 (Version 1)
Quarter: 2013Q4

REPORT INFORMATION
  Report Type: Spontaneous
  Country: US (occurrence: US)
  Receive Date: 20131119
  Receipt Date: 20131119
  Transmission Date: 20140711
  Serious: No
  Sender: FDA-Public Use
  Company Number: US-GILEAD-2007-0014087

PATIENT
  Sex: Female
  Weight: 52.16 kg

DRUGS (8)
  1. LETAIRIS [Suspect]
     Indication: PULMONARY ARTERIAL HYPERTENSION
     Route: 048
     Dates: start: 20070928
  2. PENTAMIDINE [Concomitant]
     Route: 055
  3. FEXOFENADINE [Concomitant]
     Route: 048
  4. VERAPAMIL [Concomitant]
     Route: 048
  5. FLONASE [Concomitant]
     Route: 045
  6. POTASSIUM CHLORIDE [Concomitant]
     Route: 048
  7. HYDROCHLOROTHRAZIDE [Concomitant]
     Route: 048
  8. MENEST [Concomitant]
     Route: 048

REACTIONS (1)
  - Alopecia [Not Recovered/Not Resolved]
